FAERS Safety Report 12990712 (Version 1)
Quarter: 2016Q4

REPORT INFORMATION
  Report Type: Spontaneous
  Country: None (occurrence: US)
  Receive Date: 20161201
  Receipt Date: 20161201
  Transmission Date: 20170207
  Serious: No
  Sender: FDA-Public Use
  Company Number: US-RARE DISEASE THERAPEUTICS, INC.-1060288

PATIENT
  Age: 28 Year
  Sex: Male
  Weight: 42 kg

DRUGS (10)
  1. CYSTADANE [Suspect]
     Active Substance: BETAINE
     Dates: start: 20140710
  2. BENEFIBER [Concomitant]
     Active Substance: STARCH, WHEAT
  3. DILANTIN [Concomitant]
     Active Substance: PHENYTOIN
  4. PREVACID [Concomitant]
     Active Substance: LANSOPRAZOLE
  5. VITAMINS NOS [Concomitant]
     Active Substance: VITAMINS
  6. PHENOBARBITAL. [Concomitant]
     Active Substance: PHENOBARBITAL
  7. CALCIUM 600 + D [Concomitant]
     Active Substance: CALCIUM\VITAMIN D
  8. FOLIC ACID. [Concomitant]
     Active Substance: FOLIC ACID
  9. CARNITOR [Concomitant]
     Active Substance: LEVOCARNITINE
  10. VITAMIN B12 [Concomitant]
     Active Substance: CYANOCOBALAMIN

REACTIONS (2)
  - Overdose [None]
  - Aphthous ulcer [Recovered/Resolved]

NARRATIVE: CASE EVENT DATE: 20140710
